FAERS Safety Report 24847490 (Version 1)
Quarter: 2025Q1

REPORT INFORMATION
  Report Type: Spontaneous
  Country: US (occurrence: US)
  Receive Date: 20250116
  Receipt Date: 20250116
  Transmission Date: 20250409
  Serious: Yes (Death, Hospitalization, Other)
  Sender: APOTEX
  Company Number: US-APOTEX-2025AP000576

PATIENT
  Age: 20 Year
  Sex: Female

DRUGS (2)
  1. GABAPENTIN [Suspect]
     Active Substance: GABAPENTIN
     Indication: Product used for unknown indication
     Route: 048
  2. TIANEPTINE [Suspect]
     Active Substance: TIANEPTINE
     Indication: Product used for unknown indication
     Route: 048

REACTIONS (5)
  - Cardio-respiratory arrest [Fatal]
  - Intentional product use issue [Fatal]
  - Heart rate decreased [Fatal]
  - Drug level above therapeutic [Fatal]
  - Acidosis [Fatal]

NARRATIVE: CASE EVENT DATE: 20230101
